FAERS Safety Report 17411338 (Version 3)
Quarter: 2021Q1

REPORT INFORMATION
  Report Type: Spontaneous
  Country: CA (occurrence: CA)
  Receive Date: 20200212
  Receipt Date: 20210308
  Transmission Date: 20210419
  Serious: Yes (Other)
  Sender: FDA-Public Use
  Company Number: CA-BRISTOL-MYERS SQUIBB COMPANY-BMS-2015-047649

PATIENT
  Age: 49 Year
  Sex: Female
  Weight: 73 kg

DRUGS (28)
  1. ANAKINRA [Suspect]
     Active Substance: ANAKINRA
     Indication: PRODUCT USED FOR UNKNOWN INDICATION
     Dosage: UNK
     Route: 065
  2. SULFASALAZINE. [Suspect]
     Active Substance: SULFASALAZINE
     Indication: PRODUCT USED FOR UNKNOWN INDICATION
     Dosage: UNK
     Route: 065
  3. ORENCIA [Suspect]
     Active Substance: ABATACEPT
     Indication: RHEUMATOID ARTHRITIS
     Dosage: UNK
     Route: 065
     Dates: start: 201107, end: 201311
  4. ORENCIA [Suspect]
     Active Substance: ABATACEPT
     Dosage: UNK
     Route: 042
     Dates: start: 201106, end: 201401
  5. INFLIXIMAB [Suspect]
     Active Substance: INFLIXIMAB
     Dosage: 25 MILLIGRAM, Q2WK
     Route: 065
     Dates: start: 2006, end: 200701
  6. IMURAN [Suspect]
     Active Substance: AZATHIOPRINE
     Indication: PRODUCT USED FOR UNKNOWN INDICATION
     Dosage: UNK
     Route: 065
  7. ARAVA [Suspect]
     Active Substance: LEFLUNOMIDE
     Indication: PRODUCT USED FOR UNKNOWN INDICATION
     Dosage: UNK
     Route: 065
  8. ENBREL [Suspect]
     Active Substance: ETANERCEPT
     Dosage: 2.5 MILLIGRAM, QWK
     Route: 058
  9. HYDROXYCHLOROQUINE SULFATE. [Suspect]
     Active Substance: HYDROXYCHLOROQUINE SULFATE
     Indication: PRODUCT USED FOR UNKNOWN INDICATION
     Dosage: UNK
     Route: 065
  10. INFLIXIMAB [Suspect]
     Active Substance: INFLIXIMAB
     Indication: PRODUCT USED FOR UNKNOWN INDICATION
     Dosage: 25 MILLIGRAM 2 YEARS
     Route: 042
  11. SODIUM AUROTHIOMALATE [Suspect]
     Active Substance: GOLD SODIUM THIOMALATE
     Indication: PRODUCT USED FOR UNKNOWN INDICATION
     Dosage: UNK
     Route: 030
  12. CICLOSPORIN [Suspect]
     Active Substance: CYCLOSPORINE
     Indication: PRODUCT USED FOR UNKNOWN INDICATION
     Dosage: UNK
     Route: 065
  13. ENBREL [Suspect]
     Active Substance: ETANERCEPT
     Indication: RHEUMATOID ARTHRITIS
     Dosage: 25 MILLIGRAM, 2 EVERY 1 WEEK
     Route: 058
  14. GOLD [Suspect]
     Active Substance: GOLD
     Dosage: UNK
     Route: 065
  15. METHOTREXATE. [Suspect]
     Active Substance: METHOTREXATE
     Indication: RHEUMATOID ARTHRITIS
     Dosage: UNK
     Route: 065
     Dates: start: 2009
  16. ORENCIA [Suspect]
     Active Substance: ABATACEPT
     Dosage: 4 YEARS
     Route: 042
  17. ORENCIA [Suspect]
     Active Substance: ABATACEPT
     Dosage: 14 YEARS
     Route: 065
  18. APO?AZATHIOPRINE [Suspect]
     Active Substance: AZATHIOPRINE
     Indication: PRODUCT USED FOR UNKNOWN INDICATION
     Dosage: UNK
     Route: 065
  19. REMICADE [Suspect]
     Active Substance: INFLIXIMAB
     Dosage: FOR 1 YEAR
     Route: 042
     Dates: start: 20060103, end: 2007
  20. RITUXAN [Suspect]
     Active Substance: RITUXIMAB
     Indication: PRODUCT USED FOR UNKNOWN INDICATION
     Dosage: 2 YEARS
     Route: 042
     Dates: start: 2009, end: 2010
  21. RITUXIMAB. [Suspect]
     Active Substance: RITUXIMAB
     Indication: PRODUCT USED FOR UNKNOWN INDICATION
     Dosage: 1095 DAYS
     Route: 042
  22. AZATHIOPRINE. [Suspect]
     Active Substance: AZATHIOPRINE
     Indication: PRODUCT USED FOR UNKNOWN INDICATION
     Dosage: UNK
     Route: 065
  23. ENBREL [Suspect]
     Active Substance: ETANERCEPT
     Dosage: 2.5 MILLIGRAM
     Route: 058
  24. GOLD [Suspect]
     Active Substance: GOLD
     Indication: PRODUCT USED FOR UNKNOWN INDICATION
     Dosage: UNK
     Route: 030
  25. REMICADE [Suspect]
     Active Substance: INFLIXIMAB
     Indication: PRODUCT USED FOR UNKNOWN INDICATION
     Dosage: UNK 2 YEARS
     Route: 042
  26. ACTEMRA [Suspect]
     Active Substance: TOCILIZUMAB
     Indication: PRODUCT USED FOR UNKNOWN INDICATION
     Dosage: FOR 11 MONTHS
     Route: 065
     Dates: start: 2014, end: 2014
  27. ENBREL [Suspect]
     Active Substance: ETANERCEPT
     Dosage: 2.5 MILLIGRAM
     Route: 065
  28. LEFLUNOMIDE. [Suspect]
     Active Substance: LEFLUNOMIDE
     Indication: PRODUCT USED FOR UNKNOWN INDICATION
     Dosage: UNK
     Route: 065

REACTIONS (16)
  - Condition aggravated [Not Recovered/Not Resolved]
  - Diabetes mellitus [Not Recovered/Not Resolved]
  - Treatment failure [Not Recovered/Not Resolved]
  - Ankylosing spondylitis [Not Recovered/Not Resolved]
  - Renal impairment [Not Recovered/Not Resolved]
  - Arthropathy [Not Recovered/Not Resolved]
  - Drug ineffective [Not Recovered/Not Resolved]
  - Impaired gastric emptying [Not Recovered/Not Resolved]
  - Rheumatoid arthritis [Not Recovered/Not Resolved]
  - Therapeutic response decreased [Not Recovered/Not Resolved]
  - Ill-defined disorder [Not Recovered/Not Resolved]
  - Demyelination [Not Recovered/Not Resolved]
  - Therapeutic product effect decreased [Not Recovered/Not Resolved]
  - Drug hypersensitivity [Not Recovered/Not Resolved]
  - Influenza [Not Recovered/Not Resolved]
  - Osteoarthritis [Not Recovered/Not Resolved]
